FAERS Safety Report 13610280 (Version 1)
Quarter: 2017Q2

REPORT INFORMATION
  Report Type: Spontaneous
  Country: US (occurrence: US)
  Receive Date: 20170602
  Receipt Date: 20170602
  Transmission Date: 20170830
  Serious: No
  Sender: FDA-Public Use
  Company Number: None

PATIENT
  Sex: Female

DRUGS (1)
  1. CAPECITABINE 500 MG TABLET UNKNOWN [Suspect]
     Active Substance: CAPECITABINE
     Indication: COLON CANCER
     Dosage: 1500 BID 14 ON 7 DAYS OFF ORAL
     Route: 048
     Dates: start: 20161208

REACTIONS (1)
  - Gastric perforation [None]
